FAERS Safety Report 21141873 (Version 2)
Quarter: 2022Q3

REPORT INFORMATION
  Report Type: Report from Study
  Country: AU (occurrence: None)
  Receive Date: 20220728
  Receipt Date: 20220806
  Transmission Date: 20221027
  Serious: Yes (Death, Hospitalization)
  Sender: FDA-Public Use
  Company Number: AU-ROCHE-2785655

PATIENT
  Age: 63 Year
  Sex: Male
  Weight: 67 kg

DRUGS (7)
  1. TIRAGOLUMAB [Suspect]
     Active Substance: TIRAGOLUMAB
     Indication: Non-small cell lung cancer stage III
     Dosage: DATE OF MOST RECENT DOSE OF STUDY DRUG PRIOR TO SAE: 29/DEC/2020
     Route: 042
     Dates: start: 20201102
  2. ATEZOLIZUMAB [Suspect]
     Active Substance: ATEZOLIZUMAB
     Indication: Non-small cell lung cancer stage III
     Dosage: START DATE OF MOST RECENT DOSE OF STUDY DRUG PRIOR TO SAE: 29/DEC/2020 AT 1680 MG
     Route: 041
     Dates: start: 20201102
  3. DUTASTERIDE\TAMSULOSIN [Concomitant]
     Active Substance: DUTASTERIDE\TAMSULOSIN
     Indication: Benign prostatic hyperplasia
     Dates: start: 20210304
  4. LAMIVUDINE [Concomitant]
     Active Substance: LAMIVUDINE
     Indication: Antibody test positive
     Route: 048
     Dates: start: 20200820, end: 20210321
  5. LYRICA [Concomitant]
     Active Substance: PREGABALIN
     Indication: Facial pain
     Route: 048
     Dates: start: 20201113, end: 20210222
  6. AMOXIL [Concomitant]
     Active Substance: AMOXICILLIN
     Indication: Cough
     Route: 048
     Dates: start: 20210209, end: 20210221
  7. AMOXICILLIN\CLAVULANATE POTASSIUM [Concomitant]
     Active Substance: AMOXICILLIN\CLAVULANATE POTASSIUM
     Indication: Cough
     Route: 048
     Dates: start: 20210222, end: 20210227

REACTIONS (1)
  - Neuroendocrine carcinoma [Fatal]

NARRATIVE: CASE EVENT DATE: 20210301
